APPROVED DRUG PRODUCT: VIGABATRIN
Active Ingredient: VIGABATRIN
Strength: 500MG/PACKET
Dosage Form/Route: FOR SOLUTION;ORAL
Application: A208218 | Product #001 | TE Code: AA
Applicant: PH HEALTH LTD
Approved: Apr 27, 2017 | RLD: No | RS: No | Type: RX